FAERS Safety Report 5622089-4 (Version None)
Quarter: 2008Q1

REPORT INFORMATION
  Report Type: 
  Country: None (occurrence: None)
  Receive Date: 20080211
  Receipt Date: 20080130
  Transmission Date: 20080703
  Serious: Yes (Death, Hospitalization)
  Sender: FDA-Public Use
  Company Number: HQWYE002604SEP07

PATIENT
  Sex: Male
  Weight: 80 kg

DRUGS (10)
  1. AMIODARONE HCL [Suspect]
     Indication: VENTRICULAR TACHYCARDIA
     Route: 048
     Dates: start: 20040201
  2. AMIODARONE HCL [Suspect]
     Route: 048
     Dates: end: 20070816
  3. LIPITOR [Concomitant]
     Dosage: DOSE AND FREQUENCY NOT SPECIFIED
     Route: 048
  4. DIOVAN [Concomitant]
     Route: 048
     Dates: start: 20040201
  5. AMARYL [Concomitant]
     Route: 048
     Dates: start: 20040201
  6. DAONIL [Concomitant]
     Dosage: DOSE AND FREQUENCY NOT SPECIFIED
     Route: 048
  7. LASIX [Concomitant]
     Route: 048
     Dates: start: 20040201
  8. WARFARIN SODIUM [Concomitant]
     Route: 048
     Dates: start: 20040201
  9. ASPIRIN [Concomitant]
     Dosage: DOSE AND FREQUENCY NOT SPECIFIED
     Route: 048
  10. ACTOS [Concomitant]
     Route: 048
     Dates: start: 20070101

REACTIONS (3)
  - CYTOMEGALOVIRUS INFECTION [None]
  - DRUG EFFECT DECREASED [None]
  - INTERSTITIAL LUNG DISEASE [None]
